FAERS Safety Report 12325131 (Version 1)
Quarter: 2016Q2

REPORT INFORMATION
  Report Type: Spontaneous
  Country: US (occurrence: US)
  Receive Date: 20160502
  Receipt Date: 20160502
  Transmission Date: 20160815
  Serious: No
  Sender: FDA-Public Use
  Company Number: US-ELI_LILLY_AND_COMPANY-US201604001436

PATIENT
  Age: 65 Year
  Sex: Male

DRUGS (6)
  1. CIALIS [Suspect]
     Active Substance: TADALAFIL
     Indication: ERECTILE DYSFUNCTION
     Dosage: 2.5 MG, DAILY
     Route: 048
     Dates: start: 201603, end: 20160326
  2. VITAMIIN C [Concomitant]
     Active Substance: ASCORBIC ACID
  3. PROBIOTIC                          /06395501/ [Concomitant]
     Active Substance: BIFIDOBACTERIUM ANIMALIS SUBSP. LACTIS
  4. MULTI VITAMIN [Concomitant]
     Active Substance: VITAMINS
  5. VITAMIN B [Concomitant]
     Active Substance: VITAMIN B
  6. TESTOSTERONE. [Concomitant]
     Active Substance: TESTOSTERONE

REACTIONS (4)
  - Sensory disturbance [Not Recovered/Not Resolved]
  - Insomnia [Not Recovered/Not Resolved]
  - Wrong technique in product usage process [Unknown]
  - Paraesthesia [Not Recovered/Not Resolved]

NARRATIVE: CASE EVENT DATE: 201603
